FAERS Safety Report 9882045 (Version 2)
Quarter: 2014Q1

REPORT INFORMATION
  Report Type: Spontaneous
  Country: TR (occurrence: TR)
  Receive Date: 20140207
  Receipt Date: 20140307
  Transmission Date: 20141002
  Serious: Yes (Life-Threatening)
  Sender: FDA-Public Use
  Company Number: TR-ASTRAZENECA-2014SE08818

PATIENT
  Age: 84 Year
  Sex: Male
  Weight: 84 kg

DRUGS (6)
  1. BRILINTA [Suspect]
     Indication: CORONARY ARTERIAL STENT INSERTION
     Dosage: TWO TIMES A DAY
     Route: 048
     Dates: start: 201310, end: 201402
  2. CORASPIRIN [Concomitant]
  3. BELOC [Concomitant]
     Route: 048
  4. MONODUR TB [Concomitant]
     Dosage: ONCE A DAY
  5. VASTAREL MR [Concomitant]
     Dosage: TWICE A DAY
  6. CRESTOR [Concomitant]
     Route: 048

REACTIONS (1)
  - Thrombosis in device [Recovered/Resolved with Sequelae]
